FAERS Safety Report 6298306-7 (Version None)
Quarter: 2009Q3

REPORT INFORMATION
  Report Type: 
  Country: None (occurrence: None)
  Receive Date: 20090805
  Receipt Date: 20090727
  Transmission Date: 20100115
  Serious: Yes (Hospitalization)
  Sender: FDA-Public Use
  Company Number: AT-ABBOTT-09P-009-0576847-00

PATIENT
  Sex: Female
  Weight: 73 kg

DRUGS (11)
  1. HUMIRA [Suspect]
     Indication: COLITIS ULCERATIVE
     Route: 058
     Dates: start: 20080903
  2. VENOFER [Concomitant]
     Indication: ANAEMIA
     Dates: start: 20080901, end: 20081001
  3. THYREX [Concomitant]
     Indication: HYPOTHYROIDISM
     Dates: start: 19890101
  4. TRITTICO [Concomitant]
     Indication: SLEEP DISORDER
     Dates: start: 20081015
  5. PANTOPRAZOL [Concomitant]
     Indication: GASTROOESOPHAGEAL REFLUX DISEASE
     Dates: start: 20081027
  6. PANTOPRAZOLE SODIUM [Concomitant]
     Indication: GASTROOESOPHAGEAL REFLUX DISEASE
     Dates: start: 20080917, end: 20081026
  7. HALCION [Concomitant]
     Indication: SLEEP DISORDER
     Dates: start: 20060101
  8. GLUCOPHAGE [Concomitant]
     Indication: TYPE 2 DIABETES MELLITUS
     Dates: start: 20050701
  9. INH [Concomitant]
     Indication: ANTIBIOTIC PROPHYLAXIS
     Dates: start: 20080723, end: 20081231
  10. TOBRADEX [Concomitant]
     Indication: CONJUNCTIVITIS
     Dates: start: 20081125, end: 20081214
  11. TANTUM VERDE [Concomitant]
     Indication: OROPHARYNGEAL PAIN
     Dosage: 1 APPLICATION
     Dates: start: 20090520, end: 20090525

REACTIONS (1)
  - PNEUMONIA [None]
